FAERS Safety Report 7884594-X (Version None)
Quarter: 2011Q4

REPORT INFORMATION
  Report Type: 
  Country: None (occurrence: None)
  Receive Date: 20111102
  Receipt Date: 20111029
  Transmission Date: 20120403
  Serious: Yes (Other)
  Sender: FDA-Public Use
  Company Number: DE-PFIZER INC-2011251014

PATIENT
  Age: 50 Year
  Sex: Male

DRUGS (8)
  1. RAMIPRIL [Suspect]
     Dosage: 2.5 MG, DAILY
     Route: 048
     Dates: start: 20090519, end: 20100803
  2. ALISKIREN [Suspect]
     Indication: HYPERTENSION
     Dosage: 150 MG ONCE DAILY
     Route: 048
     Dates: start: 20081126, end: 20090601
  3. SIMVASTATIN [Concomitant]
     Dosage: 10MG, UNK
     Dates: start: 20050103
  4. ALISKIREN [Suspect]
     Indication: ALBUMINURIA
     Dosage: 150 MG ONCE DAILY
     Route: 048
     Dates: start: 20091101, end: 20101013
  5. ACARBOSE [Concomitant]
     Dosage: 200MG, UNK
     Dates: start: 20041207
  6. RAMIPRIL [Suspect]
     Dosage: 5 MG, 1X/DAY
     Route: 048
     Dates: start: 20081016, end: 20090518
  7. ALISKIREN [Suspect]
     Dosage: 150 MG ONCE DAILY
     Route: 048
     Dates: start: 20110304, end: 20110418
  8. METFORMIN HCL [Concomitant]
     Dosage: 2550MG, UNK
     Dates: start: 20060119

REACTIONS (5)
  - RASH MACULO-PAPULAR [None]
  - ANGIOEDEMA [None]
  - NAUSEA [None]
  - BLOOD GLUCOSE INCREASED [None]
  - BILIRUBINURIA [None]
